FAERS Safety Report 13466689 (Version 1)
Quarter: 2017Q2

REPORT INFORMATION
  Report Type: Spontaneous
  Country: US (occurrence: US)
  Receive Date: 20170420
  Receipt Date: 20170420
  Transmission Date: 20170830
  Serious: Yes (Other)
  Sender: FDA-Public Use
  Company Number: None

PATIENT
  Sex: Female

DRUGS (1)
  1. IBRANCE [Suspect]
     Active Substance: PALBOCICLIB
     Dosage: 125MG ONCE DAILY FOR 21 DAYS THEN OFF 7 DAYS BY MOUTH
     Route: 048
     Dates: start: 20161115

REACTIONS (3)
  - Peripheral sensory neuropathy [None]
  - Paraesthesia [None]
  - Middle insomnia [None]
